FAERS Safety Report 9143162 (Version 1)
Quarter: 2013Q1

REPORT INFORMATION
  Report Type: Spontaneous
  Country: US (occurrence: US)
  Receive Date: 20130306
  Receipt Date: 20130306
  Transmission Date: 20140127
  Serious: Yes (Other)
  Sender: FDA-Public Use
  Company Number: US-PFIZER INC-2013074706

PATIENT
  Age: 51 Year
  Sex: Male
  Weight: 107.48 kg

DRUGS (3)
  1. TOVIAZ [Suspect]
     Indication: MICTURITION URGENCY
     Dosage: 4 MG, 1X/DAY
     Route: 048
     Dates: start: 20130201, end: 20130228
  2. SYNTHROID [Concomitant]
     Dosage: 350 UG, 1X/DAY
  3. KLONOPIN [Concomitant]
     Dosage: 1 MG, 2X/DAY

REACTIONS (1)
  - International normalised ratio decreased [Unknown]
